FAERS Safety Report 18708195 (Version 1)
Quarter: 2021Q1

REPORT INFORMATION
  Report Type: Spontaneous
  Country: JP (occurrence: JP)
  Receive Date: 20210106
  Receipt Date: 20210106
  Transmission Date: 20210419
  Serious: Yes (Other)
  Sender: FDA-Public Use
  Company Number: JP-BAYER-2020-248775

PATIENT
  Age: 9 Decade
  Sex: Male

DRUGS (2)
  1. GIMERACIL;OTERACIL POTASSIUM;TEGAFUR [Concomitant]
     Active Substance: GIMERACIL\OTERACIL\TEGAFUR
  2. NUBEQA [Suspect]
     Active Substance: DAROLUTAMIDE
     Indication: PROSTATE CANCER
     Dosage: DAILY DOSE 1200 MG
     Route: 048
     Dates: start: 20201029

REACTIONS (3)
  - Gastric cancer recurrent [None]
  - Gastric pH decreased [None]
  - Abdominal pain upper [None]
